FAERS Safety Report 14092264 (Version 1)
Quarter: 2017Q4

REPORT INFORMATION
  Report Type: Spontaneous
  Country: GB (occurrence: GB)
  Receive Date: 20171014
  Receipt Date: 20171014
  Transmission Date: 20180321
  Serious: Yes (Life-Threatening, Other)
  Sender: FDA-Public Use
  Company Number: None

PATIENT
  Age: 7 Year
  Sex: Female

DRUGS (6)
  1. CERTERIZINE [Concomitant]
  2. SALBUTAMOL [Concomitant]
     Active Substance: ALBUTEROL
  3. BECONASE AQ [Concomitant]
     Active Substance: BECLOMETHASONE DIPROPIONATE MONOHYDRATE
  4. SYMBICORT [Concomitant]
     Active Substance: BUDESONIDE\FORMOTEROL FUMARATE DIHYDRATE
  5. MONTELUKAST [Suspect]
     Active Substance: MONTELUKAST SODIUM
     Indication: ASTHMA
     Dosage: ?          QUANTITY:1 TABLET(S);?
     Route: 048
     Dates: start: 20141009, end: 20170913
  6. MONTELUKAST [Suspect]
     Active Substance: MONTELUKAST SODIUM
     Indication: RHINITIS
     Dosage: ?          QUANTITY:1 TABLET(S);?
     Route: 048
     Dates: start: 20141009, end: 20170913

REACTIONS (13)
  - Paranoia [None]
  - Intentional self-injury [None]
  - Emotional disorder [None]
  - Abnormal behaviour [None]
  - Fear [None]
  - Aggression [None]
  - Mental impairment [None]
  - Social anxiety disorder [None]
  - Hyperacusis [None]
  - Irritability [None]
  - Psychomotor hyperactivity [None]
  - Thinking abnormal [None]
  - Therapy change [None]

NARRATIVE: CASE EVENT DATE: 20170720
